FAERS Safety Report 4279669-0 (Version None)
Quarter: 2004Q1

REPORT INFORMATION
  Report Type: 
  Country: None (occurrence: None)
  Receive Date: 20040127
  Receipt Date: 20040127
  Transmission Date: 20041129
  Serious: Yes (Life-Threatening, Other)
  Sender: FDA-Public Use
  Company Number: None

PATIENT
  Age: 74 Year
  Sex: Female
  Weight: 65.7716 kg

DRUGS (6)
  1. ATENOLOL [Suspect]
     Dosage: 100MG DAILY ORAL
     Route: 048
     Dates: start: 19970131, end: 20040131
  2. AVAPRO [Concomitant]
  3. NORVASK [Concomitant]
  4. CHOLESTRYMINE [Concomitant]
  5. FUROSIMIDE [Concomitant]
  6. ASPIRIN [Concomitant]

REACTIONS (6)
  - CHEST PAIN [None]
  - DRUG INEFFECTIVE [None]
  - FATIGUE [None]
  - HEART RATE IRREGULAR [None]
  - PHARMACEUTICAL PRODUCT COMPLAINT [None]
  - SLUGGISHNESS [None]
